FAERS Safety Report 12998895 (Version 1)
Quarter: 2016Q4

REPORT INFORMATION
  Report Type: Spontaneous
  Country: AT (occurrence: AT)
  Receive Date: 20161205
  Receipt Date: 20161205
  Transmission Date: 20170207
  Serious: Yes (Hospitalization)
  Sender: FDA-Public Use
  Company Number: AT-ABBVIE-16P-009-1794745-00

PATIENT
  Age: 57 Year
  Sex: Female

DRUGS (4)
  1. PREGABALIN. [Concomitant]
     Active Substance: PREGABALIN
     Indication: PAIN
     Route: 048
  2. METAMIZOL [Concomitant]
     Active Substance: METAMIZOLE SODIUM
     Indication: PAIN
     Route: 048
  3. DUODOPA [Suspect]
     Active Substance: CARBIDOPA\LEVODOPA
     Indication: PARKINSON^S DISEASE
     Dosage: MD: 12 ML, CR: 8.0 ML/H, ED: 4.0 ML
     Route: 050
     Dates: start: 20160301
  4. DULOXETINE. [Concomitant]
     Active Substance: DULOXETINE
     Indication: DEPRESSION
     Route: 048

REACTIONS (12)
  - Coma [Recovered/Resolved]
  - Neuralgia [Recovering/Resolving]
  - Dehydration [Unknown]
  - Urinary tract infection [Recovered/Resolved]
  - C-reactive protein increased [Unknown]
  - General physical health deterioration [Unknown]
  - Oedema [Unknown]
  - Peripheral sensory neuropathy [Unknown]
  - Parkinsonism [Unknown]
  - Leukocytosis [Unknown]
  - Blood folate decreased [Unknown]
  - Vitamin B12 decreased [Unknown]

NARRATIVE: CASE EVENT DATE: 2016
